FAERS Safety Report 7180640-X (Version None)
Quarter: 2010Q4

REPORT INFORMATION
  Report Type: 
  Country: None (occurrence: None)
  Receive Date: 20101221
  Receipt Date: 20101217
  Transmission Date: 20110411
  Serious: Yes (Hospitalization)
  Sender: FDA-Public Use
  Company Number: JP-AMGEN-US389540

PATIENT

DRUGS (15)
  1. ENBREL [Suspect]
     Indication: RHEUMATOID ARTHRITIS
     Dosage: 50 MG, QWK
     Route: 058
     Dates: start: 20091201, end: 20100114
  2. RHEUMATREX [Suspect]
     Dosage: UNK UNK, UNK
     Route: 048
     Dates: start: 20091101, end: 20100128
  3. RHEUMATREX [Suspect]
     Dosage: UNK UNK, UNK
     Dates: start: 20040101
  4. RHEUMATREX [Suspect]
     Dosage: 8 MG, QWK
     Route: 048
     Dates: start: 20100209
  5. FOLIAMIN [Concomitant]
     Dosage: 2.5 MG, QWK
     Route: 048
     Dates: start: 20091001
  6. ALFAROL [Concomitant]
     Dosage: .5 A?G, QD
     Route: 048
  7. ELCATONIN [Concomitant]
     Dosage: UNK UNK, UNK
     Route: 030
  8. MELOXICAM [Concomitant]
     Dosage: 10 MG, QD
     Route: 048
  9. PRAVASTATIN SODIUM [Concomitant]
     Dosage: 10 MG, QD
     Route: 048
  10. WARFARIN POTASSIUM [Concomitant]
     Dosage: 4 MG, QD
     Route: 048
  11. REBAMIPIDE [Concomitant]
     Dosage: 300 MG, QD
     Route: 048
  12. AMLODIPINE BESYLATE [Concomitant]
     Dosage: 5 MG, QD
     Route: 048
  13. TRIAZOLAM [Concomitant]
     Dosage: .25 G, QD
     Route: 048
  14. DIFLUCORTOLONE VALERATE/LIDOCAINE [Concomitant]
     Dosage: UNK UNK, UNK
     Route: 061
  15. PREDNISOLONE [Concomitant]
     Dosage: 5 MG, QD
     Route: 048

REACTIONS (1)
  - ORGANISING PNEUMONIA [None]
